FAERS Safety Report 9872905 (Version 3)
Quarter: 2015Q1

REPORT INFORMATION
  Report Type: Other
  Country: US (occurrence: US)
  Receive Date: 20140206
  Receipt Date: 20150208
  Transmission Date: 20150721
  Serious: No
  Sender: FDA-Public Use
  Company Number: US-ACORDA-ACO_28936_2012

PATIENT
  Age: 68 Year
  Sex: Female
  Weight: 63.49 kg

DRUGS (6)
  1. AMPYRA [Suspect]
     Active Substance: DALFAMPRIDINE
     Dosage: 10 MG, QD
     Route: 048
     Dates: start: 201112
  2. AMPYRA [Suspect]
     Active Substance: DALFAMPRIDINE
     Indication: MULTIPLE SCLEROSIS
     Dosage: 10 MG, TWICE DAILY
     Route: 048
     Dates: start: 20111209, end: 20111211
  3. MULTIVITAMIN                       /00097801/ [Concomitant]
     Active Substance: VITAMINS
     Indication: PRODUCT USED FOR UNKNOWN INDICATION
     Dosage: UNK
  4. BACLOFEN. [Concomitant]
     Active Substance: BACLOFEN
     Indication: PRODUCT USED FOR UNKNOWN INDICATION
     Dosage: UNK
  5. AMPYRA [Suspect]
     Active Substance: DALFAMPRIDINE
     Dosage: 10 MG, QD
     Route: 048
     Dates: start: 20111213, end: 201112
  6. AMPYRA [Suspect]
     Active Substance: DALFAMPRIDINE
     Dosage: 10 MG, TWICE DAILY
     Route: 048
     Dates: start: 201112, end: 201112

REACTIONS (6)
  - Insomnia [Recovered/Resolved]
  - Dizziness [Recovered/Resolved]
  - Feeling jittery [Recovered/Resolved]
  - Burning sensation [Recovered/Resolved]
  - Paraesthesia [Recovered/Resolved]
  - Pain in extremity [Recovered/Resolved]

NARRATIVE: CASE EVENT DATE: 20111209
